FAERS Safety Report 13242276 (Version 1)
Quarter: 2017Q1

REPORT INFORMATION
  Report Type: Spontaneous
  Country: US (occurrence: US)
  Receive Date: 20170216
  Receipt Date: 20170216
  Transmission Date: 20170428
  Serious: Yes (Other)
  Sender: FDA-Public Use
  Company Number: None

PATIENT
  Age: 68 Year
  Sex: Female
  Weight: 60.78 kg

DRUGS (10)
  1. SLONIACIN [Concomitant]
  2. OCUVITE [Concomitant]
     Active Substance: VITAMINS
  3. CENTRUM SILVER [Concomitant]
     Active Substance: MINERALS\VITAMINS
  4. STOOL SOFTENER [Concomitant]
  5. AMLOD/OLMESA TABS 10-20 MGM (AMLODIPINE/OLMESRTAN MEDOXOMIL TAB) [Suspect]
     Active Substance: AMLODIPINE BESYLATE\OLMESARTAN MEDOXOMIL
     Indication: BLOOD PRESSURE MEASUREMENT
     Dosage: 1 PILL DAILY BY MOUTH
     Route: 048
     Dates: start: 20170107
  6. ASA [Concomitant]
     Active Substance: ASPIRIN
  7. SUPER B COMPLEX [Concomitant]
     Active Substance: CYANOCOBALAMIN\DEXPANTHENOL\NIACINAMIDE\PYRIDOXINE HYDROCHLORIDE\RIBOFLAVIN 5^-PHOSPHATE SODIUM\THIAMINE HYDROCHLORIDE\VITAMIN B COMPLEX
  8. BYSTOLIC [Concomitant]
     Active Substance: NEBIVOLOL HYDROCHLORIDE
  9. ZOCOR [Concomitant]
     Active Substance: SIMVASTATIN
  10. VITAMIN D3 [Concomitant]
     Active Substance: CHOLECALCIFEROL

REACTIONS (5)
  - Dysstasia [None]
  - Product substitution issue [None]
  - Pain [None]
  - Muscle spasms [None]
  - Abasia [None]

NARRATIVE: CASE EVENT DATE: 20170109
